FAERS Safety Report 15645665 (Version 1)
Quarter: 2018Q4

REPORT INFORMATION
  Report Type: Spontaneous
  Country: US (occurrence: US)
  Receive Date: 20181121
  Receipt Date: 20181121
  Transmission Date: 20190205
  Serious: Yes (Other)
  Sender: FDA-Public Use
  Company Number: US-ALLERGAN-1854263US

PATIENT
  Age: 8 Year
  Sex: Female

DRUGS (2)
  1. TRIPTORELIN PAMOATE - BP [Suspect]
     Active Substance: TRIPTORELIN PAMOATE
     Indication: PRECOCIOUS PUBERTY
     Dosage: UNK, SINGLE
     Route: 065
     Dates: start: 20181101, end: 20181101
  2. TRIPTORELIN PAMOATE - BP [Suspect]
     Active Substance: TRIPTORELIN PAMOATE
     Dosage: UNK
     Route: 065
     Dates: start: 201805, end: 201805

REACTIONS (3)
  - Paralysis [Recovered/Resolved]
  - Wrong technique in device usage process [Unknown]
  - Needle issue [Unknown]

NARRATIVE: CASE EVENT DATE: 20181101
